FAERS Safety Report 19160402 (Version 1)
Quarter: 2021Q2

REPORT INFORMATION
  Report Type: Report from Study
  Country: GB (occurrence: GB)
  Receive Date: 20210421
  Receipt Date: 20210421
  Transmission Date: 20210717
  Serious: Yes (Hospitalization)
  Sender: FDA-Public Use
  Company Number: GB-BRISTOL-MYERS SQUIBB COMPANY-BMS-2021-032515

PATIENT
  Age: 50 Year
  Sex: Male
  Weight: 85 kg

DRUGS (5)
  1. IPILIMUMAB [Suspect]
     Active Substance: IPILIMUMAB
     Indication: GLIOBLASTOMA
     Dosage: 233.4 MILLIGRAM, Q3WK
     Route: 042
     Dates: start: 20201231, end: 20210311
  2. KEPPRA [Concomitant]
     Active Substance: LEVETIRACETAM
     Indication: SEIZURE PROPHYLAXIS
     Dosage: 500 MILLIGRAM, BID
     Route: 048
     Dates: start: 20201016, end: 20210327
  3. OMEPRAZOLE. [Concomitant]
     Active Substance: OMEPRAZOLE
     Indication: PRODUCT USED FOR UNKNOWN INDICATION
     Dosage: 20 MILLIGRAM, QD
     Route: 048
     Dates: start: 20201016, end: 20210327
  4. DEXAMETHASONE. [Concomitant]
     Active Substance: DEXAMETHASONE
     Indication: OEDEMA
     Dosage: 3 MILLIGRAM, QD
     Route: 048
     Dates: start: 20210325, end: 20210327
  5. TEMOZOLOMIDE. [Suspect]
     Active Substance: TEMOZOLOMIDE
     Indication: GLIOBLASTOMA
     Dosage: 380 MILLIGRAM, QD
     Route: 048
     Dates: start: 20210114, end: 20210316

REACTIONS (1)
  - Gastrointestinal toxicity [Recovering/Resolving]

NARRATIVE: CASE EVENT DATE: 20210327
